FAERS Safety Report 5323646-5 (Version None)
Quarter: 2007Q2

REPORT INFORMATION
  Report Type: 
  Country: None (occurrence: None)
  Receive Date: 20070510
  Receipt Date: 20070510
  Transmission Date: 20071010
  Serious: Yes (Life-Threatening)
  Sender: FDA-Public Use
  Company Number: None

PATIENT
  Age: 67 Year
  Sex: Female
  Weight: 76.2043 kg

DRUGS (2)
  1. OMNIPAQUE 300 [Suspect]
     Indication: FLANK PAIN
     Dosage: 100 ML ONCE IVP
     Route: 042
  2. OMNIPAQUE 300 [Suspect]
     Indication: NEPHROLITHIASIS
     Dosage: 100 ML ONCE IVP
     Route: 042

REACTIONS (2)
  - ANAPHYLACTIC REACTION [None]
  - MYOCARDIAL INFARCTION [None]
